FAERS Safety Report 5213782-6 (Version None)
Quarter: 2007Q1

REPORT INFORMATION
  Report Type: 
  Country: None (occurrence: None)
  Receive Date: 20070119
  Receipt Date: 20070112
  Transmission Date: 20070707
  Serious: Yes (Other)
  Sender: FDA-Public Use
  Company Number: US-PFIZER INC-2006122150

PATIENT
  Age: 40 Year
  Sex: Female
  Weight: 63.5 kg

DRUGS (8)
  1. ZOLOFT [Suspect]
     Indication: AFFECTIVE DISORDER
     Route: 048
  2. ZOLOFT [Suspect]
     Indication: POST-TRAUMATIC STRESS DISORDER
  3. XANAX [Suspect]
     Indication: AFFECTIVE DISORDER
     Route: 048
  4. XANAX [Suspect]
     Indication: POST-TRAUMATIC STRESS DISORDER
  5. EPHEDRA [Suspect]
  6. SEROQUEL [Concomitant]
  7. EFFEXOR [Concomitant]
  8. ALCOHOL [Concomitant]

REACTIONS (3)
  - CONVULSION [None]
  - DRUG ABUSER [None]
  - ELECTROCARDIOGRAM QT PROLONGED [None]
